FAERS Safety Report 26155132 (Version 2)
Quarter: 2025Q4

REPORT INFORMATION
  Report Type: Spontaneous
  Country: CN (occurrence: CN)
  Receive Date: 20251215
  Receipt Date: 20251231
  Transmission Date: 20260118
  Serious: Yes (Hospitalization)
  Sender: SANOFI AVENTIS
  Company Number: CN-MLMSERVICE-20251126-PI727367-00303-2

PATIENT
  Age: 56 Year
  Sex: Male

DRUGS (16)
  1. AMLODIPINE [Interacting]
     Active Substance: AMLODIPINE BESYLATE
     Indication: Endocrine hypertension
     Dosage: 5 MG, BID
  2. BISOPROLOL FUMARATE [Interacting]
     Active Substance: BISOPROLOL FUMARATE
     Indication: Endocrine hypertension
     Dosage: 5 MG, QD
  3. BISOPROLOL FUMARATE [Interacting]
     Active Substance: BISOPROLOL FUMARATE
     Dosage: 2.5 MG, QD
  4. ISOSORBIDE MONONITRATE [Interacting]
     Active Substance: ISOSORBIDE MONONITRATE
     Indication: Chest discomfort
     Dosage: 40 MG, QD
  5. OLMESARTAN [Interacting]
     Active Substance: OLMESARTAN
     Indication: Endocrine hypertension
     Dosage: 20 MG, BID
  6. RIFAMPIN [Interacting]
     Active Substance: RIFAMPIN
     Indication: Brucellosis
     Dosage: 600 MG, QD
  7. NIFEDIPINE [Interacting]
     Active Substance: NIFEDIPINE
     Indication: Endocrine hypertension
     Dosage: 30 MG, QD
  8. DILTIAZEM HYDROCHLORIDE [Interacting]
     Active Substance: DILTIAZEM HYDROCHLORIDE
     Indication: Endocrine hypertension
     Dosage: 90 MG, BID
  9. SPIRONOLACTONE [Interacting]
     Active Substance: SPIRONOLACTONE
     Indication: Hyperaldosteronism
     Dosage: 20 MG, TID
  10. SPIRONOLACTONE [Interacting]
     Active Substance: SPIRONOLACTONE
     Dosage: 20 MG, BID
  11. TERAZOSIN [Interacting]
     Active Substance: TERAZOSIN HYDROCHLORIDE
     Indication: Endocrine hypertension
     Dosage: 4 MG, Q8H
  12. TERAZOSIN [Interacting]
     Active Substance: TERAZOSIN HYDROCHLORIDE
     Dosage: 2 MG, QD
  13. DOXAZOSIN [Interacting]
     Active Substance: DOXAZOSIN MESYLATE
     Indication: Endocrine hypertension
     Dosage: 4 MG, BID
  14. VALSARTAN [Interacting]
     Active Substance: VALSARTAN
     Indication: Endocrine hypertension
     Dosage: 80 MG
  15. CLONIDINE [Interacting]
     Active Substance: CLONIDINE
     Indication: Chest discomfort
     Dosage: 75 UG, BID
  16. DOXYCYCLINE [Concomitant]
     Active Substance: DOXYCYCLINE
     Indication: Brucellosis
     Dosage: 100 MG, BID

REACTIONS (5)
  - Hypertension [Recovered/Resolved]
  - Drug interaction [Recovered/Resolved]
  - Therapeutic product effect decreased [Recovered/Resolved]
  - False positive investigation result [Recovered/Resolved]
  - Drug level decreased [Recovered/Resolved]
